FAERS Safety Report 15465087 (Version 1)
Quarter: 2018Q4

REPORT INFORMATION
  Report Type: Report from Study
  Country: US (occurrence: US)
  Receive Date: 20181004
  Receipt Date: 20181004
  Transmission Date: 20190204
  Serious: Yes (Other)
  Sender: FDA-Public Use
  Company Number: US-GILEAD-2018-0366371

PATIENT
  Age: 25 Year
  Sex: Female

DRUGS (2)
  1. PANCREAS [Concomitant]
  2. AZTREONAM LYSINE [Suspect]
     Active Substance: AZTREONAM LYSINE
     Indication: CYSTIC FIBROSIS
     Dosage: 75 MG, TID
     Route: 055
     Dates: start: 20180612

REACTIONS (2)
  - Nasopharyngitis [Unknown]
  - Cystic fibrosis [Unknown]
